FAERS Safety Report 5749705-0 (Version None)
Quarter: 2008Q2

REPORT INFORMATION
  Report Type: 
  Country: None (occurrence: None)
  Receive Date: 20080527
  Receipt Date: 20080516
  Transmission Date: 20081010
  Serious: Yes (Hospitalization)
  Sender: FDA-Public Use
  Company Number: JP-JNJFOC-20071006468

PATIENT
  Sex: Female
  Weight: 70 kg

DRUGS (12)
  1. REMICADE [Suspect]
     Route: 042
  2. REMICADE [Suspect]
     Route: 042
  3. REMICADE [Suspect]
     Dosage: 2 INFUSIONS ON UNKNOWN DATES
     Route: 042
  4. REMICADE [Suspect]
     Indication: RHEUMATOID ARTHRITIS
     Dosage: 3 INFUSIONS ON UNSPECIFIED DATES
     Route: 042
  5. RHEUMATREX [Suspect]
     Indication: RHEUMATOID ARTHRITIS
     Route: 048
  6. PREDNISOLONE [Suspect]
     Indication: DRUG USE FOR UNKNOWN INDICATION
     Route: 048
  7. RIMATIL [Suspect]
     Indication: DRUG USE FOR UNKNOWN INDICATION
     Route: 048
  8. FAMOTIDINE [Concomitant]
     Route: 048
  9. BONALON [Concomitant]
     Route: 048
  10. VOLTAREN [Concomitant]
     Route: 048
  11. MENDON [Concomitant]
     Route: 048
  12. FOLIAMIN [Concomitant]
     Route: 048

REACTIONS (1)
  - PNEUMONIA CRYPTOCOCCAL [None]
